FAERS Safety Report 9782679 (Version 1)
Quarter: 2013Q4

REPORT INFORMATION
  Report Type: Spontaneous
  Country: FR (occurrence: FR)
  Receive Date: 20131226
  Receipt Date: 20131226
  Transmission Date: 20140711
  Serious: Yes (Life-Threatening)
  Sender: FDA-Public Use
  Company Number: FR-JNJFOC-20131211078

PATIENT
  Age: 31 Year
  Sex: Male

DRUGS (6)
  1. HALDOL [Suspect]
     Indication: SCHIZOPHRENIA, PARANOID TYPE
     Dosage: 5 MG X 6 DOSES
     Route: 048
     Dates: start: 20130925, end: 20130925
  2. LEPTICUR [Suspect]
     Indication: SCHIZOPHRENIA, PARANOID TYPE
     Dosage: 10 MG X 3 DOSES
     Route: 048
     Dates: start: 20130925, end: 20130925
  3. NOZINAN [Suspect]
     Indication: SCHIZOPHRENIA, PARANOID TYPE
     Route: 048
     Dates: start: 20131003, end: 20131003
  4. LOXAPAC [Suspect]
     Indication: SCHIZOPHRENIA, PARANOID TYPE
     Dosage: 50 DROPS PER DAY.
     Route: 048
     Dates: start: 20130924, end: 20130924
  5. HAVLANE [Concomitant]
     Route: 065
  6. FORLAX [Concomitant]
     Route: 065

REACTIONS (3)
  - Subileus [Recovered/Resolved with Sequelae]
  - Urinary retention [Recovered/Resolved with Sequelae]
  - Septic shock [Recovered/Resolved with Sequelae]
